FAERS Safety Report 4400084-0 (Version None)
Quarter: 2004Q3

REPORT INFORMATION
  Report Type: 
  Country: None (occurrence: None)
  Receive Date: 20040716
  Receipt Date: 20040702
  Transmission Date: 20050211
  Serious: Yes (Other)
  Sender: FDA-Public Use
  Company Number: 237414

PATIENT
  Age: 36 Year
  Sex: Male
  Weight: 62.6 kg

DRUGS (2)
  1. INSULATARD (INSULIN HUMAN) SUSPENSION FOR INJECTION, 100 IU/ML [Suspect]
     Indication: DIABETES MELLITUS
     Dosage: 100 IU, QD, SUBCUTANEOUS
     Route: 058
     Dates: start: 20040529, end: 20040530
  2. ACTRAPID PENFILL (INSULIN HUMAN) [Concomitant]

REACTIONS (2)
  - BLOOD GLUCOSE DECREASED [None]
  - HEMIPLEGIA [None]
